FAERS Safety Report 13439563 (Version 2)
Quarter: 2017Q2

REPORT INFORMATION
  Report Type: Report from Study
  Country: CN (occurrence: CN)
  Receive Date: 20170412
  Receipt Date: 20170518
  Transmission Date: 20170830
  Serious: Yes (Other)
  Sender: FDA-Public Use
  Company Number: PHHY2017CN054983

PATIENT
  Age: 52 Year
  Sex: Male

DRUGS (3)
  1. DIOVAN [Suspect]
     Active Substance: VALSARTAN
     Indication: HYPERTENSION
     Dosage: 80 MG, QD
     Route: 065
  2. CONCOR [Concomitant]
     Active Substance: BISOPROLOL FUMARATE
     Indication: HYPERTENSION
     Route: 065
  3. BAYASPIRIN [Concomitant]
     Active Substance: ASPIRIN
     Indication: HYPERTENSION
     Route: 065

REACTIONS (6)
  - Blood pressure increased [Unknown]
  - Blood pressure fluctuation [Recovered/Resolved]
  - Muscular weakness [Recovering/Resolving]
  - Fatigue [Unknown]
  - Gait disturbance [Unknown]
  - Thalamic infarction [Unknown]

NARRATIVE: CASE EVENT DATE: 20160820
